FAERS Safety Report 21230563 (Version 1)
Quarter: 2022Q3

REPORT INFORMATION
  Report Type: Spontaneous
  Country: DE (occurrence: DE)
  Receive Date: 20220818
  Receipt Date: 20220818
  Transmission Date: 20221027
  Serious: Yes (Life-Threatening, Hospitalization, Other)
  Sender: FDA-Public Use
  Company Number: DE-SUN PHARMACEUTICAL INDUSTRIES LTD-2022RR-349360

PATIENT
  Age: 91 Year
  Sex: Female

DRUGS (10)
  1. ALENDRONIC ACID [Suspect]
     Active Substance: ALENDRONIC ACID
     Indication: Osteoporosis
     Dosage: 70 MILLIGRAM, UNK
     Route: 048
  2. Thiamazol 5 mg [Concomitant]
     Indication: Product used for unknown indication
     Dosage: 1-0-0
     Route: 065
  3. Vitamin B12 1000 ?g [Concomitant]
     Indication: Product used for unknown indication
     Dosage: 3 TIMES A WEEK
     Route: 065
  4. Natriumperchlorat 300 mg [Concomitant]
     Indication: Product used for unknown indication
     Dosage: 1-1-1
     Route: 065
  5. RISPERIDONE [Concomitant]
     Active Substance: RISPERIDONE
     Indication: Product used for unknown indication
     Dosage: 1-0-1
     Route: 065
  6. POLYETHYLENE GLYCOLS [Concomitant]
     Active Substance: POLYETHYLENE GLYCOLS
     Indication: Product used for unknown indication
     Dosage: 1-0-0
     Route: 065
  7. Fentanyl 0.025 TTS [Concomitant]
     Indication: Spinal fracture
     Dosage: UNK
     Route: 065
  8. Fentanyl 0.025 TTS [Concomitant]
     Indication: Back pain
  9. BISOPROLOL [Concomitant]
     Active Substance: BISOPROLOL
     Indication: Product used for unknown indication
     Dosage: 1-0-1
     Route: 065
  10. Folsaure 5 mg [Concomitant]
     Indication: Product used for unknown indication
     Dosage: 5 MILIGRAM, DAILY
     Route: 065

REACTIONS (4)
  - Pneumomediastinum [Not Recovered/Not Resolved]
  - Pneumothorax [Not Recovered/Not Resolved]
  - Foreign body in throat [Not Recovered/Not Resolved]
  - Oesophageal perforation [Not Recovered/Not Resolved]

NARRATIVE: CASE EVENT DATE: 20220701
